FAERS Safety Report 4663415-2 (Version None)
Quarter: 2005Q2

REPORT INFORMATION
  Report Type: 
  Country: None (occurrence: None)
  Receive Date: 20050513
  Receipt Date: 20050503
  Transmission Date: 20051028
  Serious: Yes (Hospitalization)
  Sender: FDA-Public Use
  Company Number: 203388

PATIENT
  Age: 37 Year
  Sex: Male
  Weight: 77.1115 kg

DRUGS (6)
  1. AVONEX [Suspect]
     Indication: MULTIPLE SCLEROSIS
     Dosage: 30 UG;QW;IM
     Route: 030
     Dates: start: 19970101, end: 20030801
  2. AVONEX [Suspect]
     Indication: MULTIPLE SCLEROSIS
     Dosage: 30 UG;QW;IM
     Route: 030
     Dates: start: 20030801, end: 20040901
  3. AVONEX [Suspect]
     Indication: MULTIPLE SCLEROSIS
     Dosage: IM
     Route: 030
  4. NEURONTIN [Concomitant]
  5. DEXTROSTAT [Concomitant]
  6. DALMANE [Concomitant]

REACTIONS (20)
  - AMNESIA [None]
  - CONCUSSION [None]
  - CONFUSIONAL STATE [None]
  - CONVULSION [None]
  - DIFFICULTY IN WALKING [None]
  - DYSARTHRIA [None]
  - FALL [None]
  - GRAND MAL CONVULSION [None]
  - HALLUCINATION [None]
  - HEMIPARESIS [None]
  - HYPOAESTHESIA [None]
  - INFLUENZA LIKE ILLNESS [None]
  - MUSCLE SPASMS [None]
  - MUSCULAR WEAKNESS [None]
  - OSTEOCHONDROSIS [None]
  - PNEUMONIA [None]
  - RESPIRATORY ARREST [None]
  - SENSORY LOSS [None]
  - URINARY HESITATION [None]
  - URINARY INCONTINENCE [None]
